FAERS Safety Report 7748939-3 (Version None)
Quarter: 2011Q3

REPORT INFORMATION
  Report Type: 
  Country: None (occurrence: None)
  Receive Date: 20110913
  Receipt Date: 20110913
  Transmission Date: 20111222
  Serious: Yes (Hospitalization)
  Sender: FDA-Public Use
  Company Number: None

PATIENT
  Age: 48 Year
  Sex: Female
  Weight: 67.7 kg

DRUGS (1)
  1. LAMOTRIGINE [Suspect]
     Indication: AFFECTIVE DISORDER
     Dosage: 50-75 MG EVERY DAY PO
     Route: 048
     Dates: start: 20110629, end: 20110708

REACTIONS (3)
  - ERYTHEMA MULTIFORME [None]
  - INCORRECT DOSE ADMINISTERED [None]
  - STEVENS-JOHNSON SYNDROME [None]
